FAERS Safety Report 8412885-2 (Version None)
Quarter: 2012Q2

REPORT INFORMATION
  Report Type: 
  Country: None (occurrence: None)
  Receive Date: 20120605
  Receipt Date: 20120524
  Transmission Date: 20120825
  Serious: No
  Sender: FDA-Public Use
  Company Number: US-AMGEN-USASP2012032792

PATIENT
  Age: 45 Year
  Sex: Female

DRUGS (2)
  1. ENBREL [Suspect]
     Indication: RHEUMATOID ARTHRITIS
     Dosage: 25 MG, 2 TIMES/WK
     Dates: start: 20090101
  2. ENBREL [Suspect]
     Indication: PSORIASIS

REACTIONS (11)
  - HYPERSENSITIVITY [None]
  - SPUTUM DISCOLOURED [None]
  - ERYTHEMA [None]
  - COUGH [None]
  - SWELLING [None]
  - FEELING HOT [None]
  - OROPHARYNGEAL PAIN [None]
  - DRUG INEFFECTIVE [None]
  - INJECTION SITE HAEMATOMA [None]
  - LATEX ALLERGY [None]
  - RHINORRHOEA [None]
